FAERS Safety Report 8845110 (Version 2)
Quarter: 2013Q3

REPORT INFORMATION
  Report Type: Report from Study
  Country: DE (occurrence: DE)
  Receive Date: 20121017
  Receipt Date: 20130919
  Transmission Date: 20140515
  Serious: Yes (Death, Hospitalization)
  Sender: FDA-Public Use
  Company Number: DE-ASTELLAS-2012US010209

PATIENT
  Age: 59 Year
  Sex: Male
  Weight: 90 kg

DRUGS (13)
  1. ERLOTINIB TABLET [Suspect]
     Indication: PANCREATIC CARCINOMA
     Dosage: 100 MG, UID/QD
     Route: 048
     Dates: start: 20120816, end: 20120927
  2. GEMZAR [Suspect]
     Indication: PANCREATIC CARCINOMA
     Dosage: UNK
     Route: 042
     Dates: start: 20090430, end: 20091001
  3. GEMZAR [Suspect]
     Dosage: 2000 MG, WEEKLY
     Route: 042
     Dates: start: 20120816, end: 20120927
  4. ACTRAPID                           /00646001/ [Concomitant]
     Indication: TYPE 2 DIABETES MELLITUS
     Dosage: 30-16-6 IE, TID
     Route: 058
  5. ACC                                /00082801/ [Concomitant]
     Indication: COUGH
     Dosage: 600 DF, UNKNOWN/D
     Route: 048
  6. TILIDINE                           /00205402/ [Concomitant]
     Indication: PAIN
     Dosage: 54 MG, BID
     Route: 048
  7. PANTOZOL                           /01263204/ [Concomitant]
     Indication: PRODUCT USED FOR UNKNOWN INDICATION
     Dosage: 40 MG, BID
     Route: 048
  8. ATACAND [Concomitant]
     Indication: HYPERTENSION
     Dosage: 16/12.5
     Route: 048
  9. BISOPROLOL [Concomitant]
     Indication: HYPERTENSION
     Dosage: 5 MG, UID/QD
     Route: 048
  10. KREON                              /00014701/ [Concomitant]
     Indication: PRODUCT USED FOR UNKNOWN INDICATION
     Dosage: 40000 DF, TID
     Route: 048
  11. NOVAMIN                            /00391002/ [Concomitant]
     Indication: PRODUCT USED FOR UNKNOWN INDICATION
     Dosage: 30 DROPS, TID
     Route: 048
  12. CIPRAMIL                           /00582602/ [Concomitant]
     Indication: PRODUCT USED FOR UNKNOWN INDICATION
     Dosage: 600 MG, UID/QD
     Route: 048
  13. LANTUS [Concomitant]
     Indication: PRODUCT USED FOR UNKNOWN INDICATION
     Dosage: 26 U, 4 IN 1 D
     Route: 058

REACTIONS (7)
  - General physical health deterioration [Unknown]
  - Bronchopneumonia [Recovered/Resolved]
  - Dyspnoea [Unknown]
  - Abdominal pain upper [Unknown]
  - Trousseau^s syndrome [Fatal]
  - Pulmonary embolism [Recovered/Resolved]
  - Deep vein thrombosis [Recovered/Resolved]
